FAERS Safety Report 6480840-8 (Version None)
Quarter: 2009Q4

REPORT INFORMATION
  Report Type: 
  Country: None (occurrence: None)
  Receive Date: 20091208
  Receipt Date: 20091118
  Transmission Date: 20100525
  Serious: Yes (Other)
  Sender: FDA-Public Use
  Company Number: US-ASTRAZENECA-2009SE27491

PATIENT
  Sex: Female

DRUGS (6)
  1. ACCOLATE [Suspect]
     Indication: ASTHMA
     Route: 048
  2. QVAR 40 [Suspect]
     Route: 055
  3. PREDNISONE [Concomitant]
  4. ALBUTEROL [Concomitant]
  5. PROZAC [Concomitant]
  6. LORAZEPAM [Concomitant]

REACTIONS (2)
  - BLOOD GLUCOSE ABNORMAL [None]
  - DENTAL CARIES [None]
